FAERS Safety Report 9207807 (Version 1)
Quarter: 2013Q2

REPORT INFORMATION
  Report Type: Spontaneous
  Country: US (occurrence: US)
  Receive Date: 20130403
  Receipt Date: 20130403
  Transmission Date: 20140414
  Serious: Yes (Hospitalization)
  Sender: FDA-Public Use
  Company Number: US-GLAXOSMITHKLINE-A1018540A

PATIENT
  Sex: Female

DRUGS (3)
  1. SORIATANE [Suspect]
     Indication: PSORIASIS
     Route: 048
  2. HUMIRA [Suspect]
     Indication: PSORIASIS
     Dosage: 40MG UNKNOWN
     Route: 042
  3. STELARA [Suspect]
     Indication: PSORIASIS
     Route: 065

REACTIONS (3)
  - Drug-induced liver injury [Unknown]
  - Biopsy liver abnormal [Unknown]
  - Drug tolerance [Unknown]
